FAERS Safety Report 9306908 (Version 2)
Quarter: 2013Q2

REPORT INFORMATION
  Report Type: Spontaneous
  Country: US (occurrence: None)
  Receive Date: 20130314
  Receipt Date: 20130422
  Transmission Date: 20140414
  Serious: Yes (Hospitalization, Other)
  Sender: FDA-Public Use
  Company Number: JPI-P-016885

PATIENT
  Age: 65 Year
  Sex: Female
  Weight: 58.97 kg

DRUGS (7)
  1. XYREM (500 MILLIGRAM/MILLILITERS, SOLUTION) (SODIUM OXYBATE) [Suspect]
     Indication: CATAPLEXY
     Dosage: 6 GM (3 GM, 2 IN 1 D, ORAL
     Route: 048
     Dates: start: 20090219, end: 201201
  2. SUMATRIPTAN SUCCINATE [Concomitant]
  3. AMLODIPINE BESYLATE [Concomitant]
  4. DICLOFENAC SODIUM [Concomitant]
  5. METOPROLOL [Concomitant]
  6. IRBESARTAN [Concomitant]
  7. DILTIAZEM HCL [Concomitant]

REACTIONS (15)
  - Enuresis [None]
  - Back pain [None]
  - Neck pain [None]
  - Condition aggravated [None]
  - Somnambulism [None]
  - Hypoaesthesia [None]
  - Muscular weakness [None]
  - Weight increased [None]
  - Somnolence [None]
  - Hypersomnia [None]
  - Sleep apnoea syndrome [None]
  - Hyperhidrosis [None]
  - Migraine [None]
  - Road traffic accident [None]
  - Neck injury [None]
